FAERS Safety Report 6576954-4 (Version None)
Quarter: 2010Q1

REPORT INFORMATION
  Report Type: 
  Country: None (occurrence: None)
  Receive Date: 20100210
  Receipt Date: 20100127
  Transmission Date: 20100710
  Serious: Yes (Hospitalization)
  Sender: FDA-Public Use
  Company Number: NL-MEDIMMUNE-MEDI-0010470

PATIENT
  Sex: Female

DRUGS (2)
  1. SYNAGIS [Suspect]
     Route: 030
     Dates: start: 20091105, end: 20091230
  2. SYNAGIS [Suspect]
     Route: 030
     Dates: start: 20100127, end: 20100127

REACTIONS (5)
  - DYSPNOEA [None]
  - INFANTILE SPITTING UP [None]
  - PYREXIA [None]
  - RHINORRHOEA [None]
  - VOMITING [None]
